FAERS Safety Report 10149192 (Version 1)
Quarter: 2014Q2

REPORT INFORMATION
  Report Type: Spontaneous
  Country: US (occurrence: None)
  Receive Date: 20140501
  Receipt Date: 20140501
  Transmission Date: 20141212
  Serious: Yes (Hospitalization)
  Sender: FDA-Public Use
  Company Number: None

PATIENT
  Age: 64 Year
  Sex: Female

DRUGS (11)
  1. GLIMOPIRIDE [Suspect]
     Indication: HYPERGLYCAEMIA
     Route: 048
     Dates: start: 20130602
  2. FEBUXOSTAT [Concomitant]
  3. BISOPROLOL [Suspect]
  4. HYDROCHLOROTHIAZIDE [Concomitant]
  5. CLONIDINE [Concomitant]
  6. FUROSEMIDE [Concomitant]
  7. GABAPENTIN [Concomitant]
  8. LISINOPRIL [Concomitant]
  9. TERAZOSIN [Concomitant]
  10. TRAMADOL [Concomitant]
  11. ACETAMINOPHEN [Concomitant]

REACTIONS (3)
  - Restlessness [None]
  - Agitation [None]
  - Hypoglycaemia [None]
